FAERS Safety Report 4277725-4 (Version None)
Quarter: 2004Q1

REPORT INFORMATION
  Report Type: 
  Country: None (occurrence: None)
  Receive Date: 20040121
  Receipt Date: 20040112
  Transmission Date: 20041129
  Serious: Yes (Hospitalization)
  Sender: FDA-Public Use
  Company Number: 2004EU000042

PATIENT
  Age: 50 Year
  Sex: Female

DRUGS (2)
  1. PROGRAF [Suspect]
     Indication: LIVER TRANSPLANT
     Dosage: UNKNOWN/D, UNKNOWN
     Dates: start: 20031101
  2. ANTIBIOTICS [Concomitant]

REACTIONS (2)
  - CONVULSION [None]
  - ENCEPHALITIS [None]
